FAERS Safety Report 10482567 (Version 5)
Quarter: 2014Q4

REPORT INFORMATION
  Report Type: Report from Study
  Country: JP (occurrence: JP)
  Receive Date: 20140929
  Receipt Date: 20141104
  Transmission Date: 20150528
  Serious: Yes (Hospitalization)
  Sender: FDA-Public Use
  Company Number: JP-OTSUKA-US-2014-12974

PATIENT

DRUGS (3)
  1. SENNA [Concomitant]
     Active Substance: SENNA LEAF\SENNOSIDES\SENNOSIDES A AND B
     Indication: CONSTIPATION
     Dosage: 1 G GRAM(S), UNK
     Route: 048
     Dates: start: 20121120
  2. BLINDED OPC-14597 [Suspect]
     Active Substance: CILOSTAZOL
     Indication: BIPOLAR I DISORDER
     Dosage: UNK
     Route: 065
     Dates: start: 20131011, end: 20131205
  3. BLINDED OPC-14597 [Suspect]
     Active Substance: CILOSTAZOL
     Dosage: 400 MG MILLIGRAM(S), UNK
     Route: 030
     Dates: start: 20131206, end: 20140822

REACTIONS (2)
  - Affect lability [Recovered/Resolved]
  - Hypomania [Not Recovered/Not Resolved]

NARRATIVE: CASE EVENT DATE: 20140919
